FAERS Safety Report 21752719 (Version 1)
Quarter: 2022Q4

REPORT INFORMATION
  Report Type: Spontaneous
  Country: US (occurrence: None)
  Receive Date: 20221219
  Receipt Date: 20221219
  Transmission Date: 20230112
  Serious: Yes (Other)
  Sender: FDA-Public Use
  Company Number: None

PATIENT
  Age: 56 Year
  Sex: Male
  Weight: 105 kg

DRUGS (1)
  1. DOXORUBICIN HYDROCHLORIDE [Suspect]
     Active Substance: DOXORUBICIN HYDROCHLORIDE
     Indication: Follicular lymphoma
     Dosage: FREQUENCY : ONCE;?
     Route: 042
     Dates: start: 20220726, end: 20221012

REACTIONS (2)
  - Cardiomyopathy [None]
  - Ejection fraction decreased [None]

NARRATIVE: CASE EVENT DATE: 20221001
